FAERS Safety Report 8637933 (Version 2)
Quarter: 2012Q4

REPORT INFORMATION
  Report Type: 
  Country: US (occurrence: US)
  Receive Date: 20120627
  Receipt Date: 20121129
  Transmission Date: 20130627
  Serious: Yes (Hospitalization)
  Sender: FDA-Public Use
  Company Number: US-ELI_LILLY_AND_COMPANY-US201203006925

PATIENT
  Age: 71 Year
  Sex: Male

DRUGS (5)
  1. FORTEO [Suspect]
     Indication: OSTEOPOROSIS
     Dosage: 20 ug, qd
  2. FORTEO [Suspect]
     Dosage: 20 ug, qd
     Dates: start: 20120301
  3. FORTEO [Suspect]
     Dosage: 20 ug, qd
     Route: 065
  4. FORTEO [Suspect]
     Dosage: 20 ug, qd
     Route: 065
  5. FORTEO [Suspect]
     Dosage: 20 ug, qd

REACTIONS (11)
  - Spinal operation [Recovering/Resolving]
  - Post procedural complication [Unknown]
  - Surgery [Unknown]
  - Hypoaesthesia [Unknown]
  - Dysstasia [Unknown]
  - Muscular weakness [Unknown]
  - Gait disturbance [Unknown]
  - Lethargy [Unknown]
  - Fatigue [Unknown]
  - Listless [Unknown]
  - Neck pain [Not Recovered/Not Resolved]
